FAERS Safety Report 19922824 (Version 1)
Quarter: 2021Q4

REPORT INFORMATION
  Report Type: Report from Study
  Country: PH (occurrence: PH)
  Receive Date: 20211006
  Receipt Date: 20211006
  Transmission Date: 20220303
  Serious: Yes (Death)
  Sender: FDA-Public Use
  Company Number: PH-NOVARTISPH-NVSC2021PH228049

PATIENT

DRUGS (1)
  1. ENTRESTO [Suspect]
     Active Substance: SACUBITRIL\VALSARTAN
     Indication: Product used for unknown indication
     Dosage: 0.5 DF, BID (LOWEST DOSE)
     Route: 048

REACTIONS (2)
  - Death [Fatal]
  - Wrong technique in product usage process [Fatal]
